FAERS Safety Report 18377863 (Version 1)
Quarter: 2020Q4

REPORT INFORMATION
  Report Type: Spontaneous
  Country: IT (occurrence: IT)
  Receive Date: 20201013
  Receipt Date: 20201013
  Transmission Date: 20210114
  Serious: Yes (Life-Threatening)
  Sender: FDA-Public Use
  Company Number: IT-PFIZER INC-2020393843

PATIENT
  Age: 50 Year
  Weight: 58 kg

DRUGS (4)
  1. OMEPRAZOLE. [Concomitant]
     Active Substance: OMEPRAZOLE
     Dosage: 40 MG
     Route: 042
     Dates: start: 20200924, end: 20200924
  2. PACLITAXEL. [Suspect]
     Active Substance: PACLITAXEL
     Indication: OVARIAN NEOPLASM
     Dosage: 290 MG, TOTAL
     Route: 042
     Dates: start: 20200924, end: 20200924
  3. DEXAMETHASONE. [Concomitant]
     Active Substance: DEXAMETHASONE
     Dosage: 20 MG
     Route: 042
     Dates: start: 20200924, end: 20200924
  4. CHLORPHENAMINE [Concomitant]
     Active Substance: CHLORPHENIRAMINE MALEATE
     Dosage: 10 MG
     Route: 042
     Dates: start: 20200924, end: 20200924

REACTIONS (10)
  - Hypotension [Recovering/Resolving]
  - Dyspepsia [Recovering/Resolving]
  - Pulse absent [Recovering/Resolving]
  - Suffocation feeling [Recovering/Resolving]
  - Hyperhidrosis [Recovering/Resolving]
  - Cough [Recovering/Resolving]
  - Hypothermia [Recovering/Resolving]
  - Plethoric face [Recovering/Resolving]
  - Erythema [Recovering/Resolving]
  - Loss of consciousness [Recovering/Resolving]

NARRATIVE: CASE EVENT DATE: 20200924
